FAERS Safety Report 5376662-1 (Version None)
Quarter: 2007Q2

REPORT INFORMATION
  Report Type: 
  Country: None (occurrence: None)
  Receive Date: 20070629
  Receipt Date: 20070614
  Transmission Date: 20071010
  Serious: Yes (Life-Threatening, Hospitalization, Other)
  Sender: FDA-Public Use
  Company Number: 2007RR-07945

PATIENT
  Sex: Male

DRUGS (2)
  1. BENDROFLUMETHIAZIDE(BENDROFLUMETHIAZIDE) UNKNOWN [Suspect]
     Dosage: ORAL
     Route: 048
  2. FLECAINIDE ACETATE [Suspect]

REACTIONS (10)
  - ASTHENIA [None]
  - CARDIOTOXICITY [None]
  - DRUG INTERACTION [None]
  - DRUG TOXICITY [None]
  - ELECTROCARDIOGRAM QRS COMPLEX PROLONGED [None]
  - ELECTROLYTE IMBALANCE [None]
  - FATIGUE [None]
  - HYPOKALAEMIA [None]
  - HYPONATRAEMIA [None]
  - SYNCOPE [None]
